FAERS Safety Report 18955310 (Version 2)
Quarter: 2024Q3

REPORT INFORMATION
  Report Type: Spontaneous
  Country: US (occurrence: US)
  Receive Date: 20210301
  Receipt Date: 20240910
  Transmission Date: 20241017
  Serious: Yes (Other)
  Sender: PFIZER
  Company Number: US-PFIZER INC-2021198584

PATIENT
  Age: 44 Year
  Sex: Male
  Weight: 150 kg

DRUGS (7)
  1. EPINEPHRINE [Suspect]
     Active Substance: EPINEPHRINE
     Indication: Shock
     Dosage: UNK (INFUSION)
     Route: 042
  2. NOREPINEPHRINE BITARTRATE [Suspect]
     Active Substance: NOREPINEPHRINE BITARTRATE
     Indication: Shock
     Dosage: UNK (INFUSION)
  3. GIAPREZA [Suspect]
     Active Substance: ANGIOTENSIN II
     Indication: Shock
     Dosage: UNK (INITIAL RATE OF 10 NG/KG/MIN CONTINUOUS INFUSION)
  4. VASOPRESSIN [Suspect]
     Active Substance: VASOPRESSIN
     Indication: Shock
     Dosage: UNK (CONTINUOUS INFUSION)
  5. HEPARIN SODIUM [Concomitant]
     Active Substance: HEPARIN SODIUM
     Indication: Thrombosis prophylaxis
     Dosage: 5000 IU, 3X/DAY (EVERY 8 HOURS)
     Route: 058
  6. HEPARIN SODIUM [Concomitant]
     Active Substance: HEPARIN SODIUM
     Dosage: UNK (INFUSION)
     Route: 042
  7. HYDROCORTISONE [Concomitant]
     Active Substance: HYDROCORTISONE\HYDROCORTISONE ACETATE
     Indication: Shock
     Dosage: UNK (CONTINUOUS INFUSION)
     Route: 042

REACTIONS (2)
  - Abdominal pain [Unknown]
  - Intestinal ischaemia [Unknown]
